FAERS Safety Report 17236015 (Version 1)
Quarter: 2020Q1

REPORT INFORMATION
  Report Type: Spontaneous
  Country: GB (occurrence: GB)
  Receive Date: 20200106
  Receipt Date: 20200106
  Transmission Date: 20200409
  Serious: Yes (Other)
  Sender: FDA-Public Use
  Company Number: GB-ALKEM LABORATORIES LIMITED-GB-ALKEM-2019-11056

PATIENT
  Age: 23 Year
  Sex: Female

DRUGS (8)
  1. PREDNISOLONE. [Suspect]
     Active Substance: PREDNISOLONE
     Indication: CENTRAL NERVOUS SYSTEM LUPUS
  2. HYDROXYCHLOROQUINE [Suspect]
     Active Substance: HYDROXYCHLOROQUINE
     Indication: SYSTEMIC LUPUS ERYTHEMATOSUS
     Dosage: UNK
     Route: 065
     Dates: start: 2011
  3. RITUXIMAB. [Suspect]
     Active Substance: RITUXIMAB
     Indication: IMMUNE THROMBOCYTOPENIC PURPURA
     Dosage: 375 MILLIGRAM/SQ. METER
     Route: 065
     Dates: start: 201510, end: 2015
  4. MYCOPHENOLATE MOFETIL. [Suspect]
     Active Substance: MYCOPHENOLATE MOFETIL
     Indication: SYSTEMIC LUPUS ERYTHEMATOSUS
     Dosage: UNK
     Route: 065
     Dates: start: 2017, end: 2018
  5. AZATHIOPRINE. [Suspect]
     Active Substance: AZATHIOPRINE
     Indication: SYSTEMIC LUPUS ERYTHEMATOSUS
     Dosage: 150 MILLIGRAM
     Route: 065
     Dates: start: 2011, end: 2017
  6. PREDNISOLONE. [Suspect]
     Active Substance: PREDNISOLONE
     Indication: SYSTEMIC LUPUS ERYTHEMATOSUS
  7. RITUXIMAB. [Suspect]
     Active Substance: RITUXIMAB
     Indication: PLEURISY
     Dosage: UNK
     Route: 065
     Dates: start: 201610
  8. PREDNISOLONE. [Suspect]
     Active Substance: PREDNISOLONE
     Indication: CENTRAL NERVOUS SYSTEM VASCULITIS
     Dosage: 7.5 MILLIGRAM, QD
     Route: 065
     Dates: start: 2011

REACTIONS (5)
  - Meningitis enteroviral [Recovered/Resolved]
  - Viral upper respiratory tract infection [Unknown]
  - Infection [Recovered/Resolved]
  - Central nervous system lupus [Recovering/Resolving]
  - Central nervous system vasculitis [Recovering/Resolving]

NARRATIVE: CASE EVENT DATE: 201707
